FAERS Safety Report 24172677 (Version 1)
Quarter: 2024Q3

REPORT INFORMATION
  Report Type: Spontaneous
  Country: CH (occurrence: CH)
  Receive Date: 20240805
  Receipt Date: 20240805
  Transmission Date: 20241017
  Serious: Yes (Other)
  Sender: ROCHE
  Company Number: CH-Atnahs Limited-ATNAHS20240702206

PATIENT
  Age: 70 Year

DRUGS (1)
  1. BONVIVA [Suspect]
     Active Substance: IBANDRONATE SODIUM
     Indication: Product used for unknown indication
     Route: 065

REACTIONS (4)
  - Injection site swelling [Unknown]
  - Erythema [Unknown]
  - Pain [Unknown]
  - Extravasation [Unknown]
